FAERS Safety Report 17868658 (Version 3)
Quarter: 2020Q4

REPORT INFORMATION
  Report Type: Report from Study
  Country: AR (occurrence: AR)
  Receive Date: 20200606
  Receipt Date: 20201006
  Transmission Date: 20210113
  Serious: Yes (Hospitalization, Other)
  Sender: FDA-Public Use
  Company Number: NVSC2020AR158156

PATIENT
  Age: 28 Year
  Sex: Female

DRUGS (2)
  1. REVOLADE [Suspect]
     Active Substance: ELTROMBOPAG
     Indication: IMMUNE THROMBOCYTOPENIA
     Dosage: 50 MG, QD (STOPPED DATE 15 DAYS AGO)
     Route: 065
     Dates: start: 20191205
  2. REVOLADE [Suspect]
     Active Substance: ELTROMBOPAG
     Dosage: 100 MG, QOD
     Route: 065

REACTIONS (4)
  - Immune thrombocytopenia [Unknown]
  - Platelet count decreased [Recovering/Resolving]
  - Haemolytic anaemia [Recovering/Resolving]
  - Product availability issue [Unknown]

NARRATIVE: CASE EVENT DATE: 202005
